FAERS Safety Report 7197639-X (Version None)
Quarter: 2010Q4

REPORT INFORMATION
  Report Type: 
  Country: None (occurrence: None)
  Receive Date: 20101227
  Receipt Date: 20101220
  Transmission Date: 20110411
  Serious: Yes (Other)
  Sender: FDA-Public Use
  Company Number: IT-PFIZER INC-2010176402

PATIENT
  Age: 22 Year
  Sex: Female

DRUGS (1)
  1. CELEBREX [Suspect]
     Indication: INTERVERTEBRAL DISC DISORDER
     Dosage: 200 MG/KG, 1X/DAY
     Route: 048
     Dates: start: 20101216, end: 20101216

REACTIONS (1)
  - HALLUCINATION [None]
